FAERS Safety Report 6903830-7 (Version None)
Quarter: 2010Q3

REPORT INFORMATION
  Report Type: 
  Country: None (occurrence: None)
  Receive Date: 20100804
  Receipt Date: 20090114
  Transmission Date: 20110219
  Serious: No
  Sender: FDA-Public Use
  Company Number: US-PFIZER INC-2008099488

PATIENT
  Sex: Male
  Weight: 90.4 kg

DRUGS (1)
  1. LYRICA [Suspect]
     Indication: GENERALISED ANXIETY DISORDER
     Dosage: 50 MG, 3X/DAY
     Dates: start: 20081029

REACTIONS (2)
  - DIZZINESS [None]
  - VERTIGO [None]
